FAERS Safety Report 4359452-8 (Version None)
Quarter: 2004Q2

REPORT INFORMATION
  Report Type: 
  Country: None (occurrence: None)
  Receive Date: 20040512
  Receipt Date: 20040428
  Transmission Date: 20050107
  Serious: Yes (Other)
  Sender: FDA-Public Use
  Company Number: USA040466191

PATIENT
  Age: 74 Year
  Sex: Female
  Weight: 52 kg

DRUGS (6)
  1. FORTEO [Suspect]
     Indication: OSTEOPOROSIS
     Dates: start: 20040101
  2. EVISTA [Suspect]
     Indication: OSTEOPOROSIS
     Dates: end: 20040327
  3. MAXZIDE [Concomitant]
  4. PRILOSEC [Concomitant]
  5. ACTONEL [Concomitant]
  6. COMBIVENT [Concomitant]

REACTIONS (9)
  - DRUG INEFFECTIVE [None]
  - FALL [None]
  - FEELING HOT [None]
  - FRACTURE [None]
  - OEDEMA PERIPHERAL [None]
  - PHARMACEUTICAL PRODUCT COMPLAINT [None]
  - RASH ERYTHEMATOUS [None]
  - SCAB [None]
  - UPPER LIMB FRACTURE [None]
